FAERS Safety Report 8924679 (Version 3)
Quarter: 2013Q3

REPORT INFORMATION
  Report Type: Spontaneous
  Country: US (occurrence: US)
  Receive Date: 20121126
  Receipt Date: 20130930
  Transmission Date: 20140515
  Serious: Yes (Other)
  Sender: FDA-Public Use
  Company Number: US-PFIZER INC-2012292529

PATIENT
  Age: 73 Year
  Sex: Female

DRUGS (11)
  1. SUTENT [Suspect]
     Indication: RENAL CELL CARCINOMA
     Dosage: 25 MG, DAILY, CYCLIC (4 WEEKS ON/ 2 OFF)
     Route: 048
     Dates: start: 20110428, end: 20121024
  2. SUTENT [Suspect]
     Dosage: 12.5 MG, CYCLIC (4 WEEKS ON/ 2 WKS OFF)
     Dates: start: 201210
  3. ALLOPURINOL [Concomitant]
     Dosage: UNK
  4. ATENOLOL [Concomitant]
     Dosage: 50 MG, DAILY
  5. ESCITALOPRAM OXALATE [Concomitant]
     Dosage: UNK
  6. EVISTA [Concomitant]
     Dosage: UNK
  7. HYDROCODONE W/ACETAMINOPHEN [Concomitant]
     Dosage: UNK
  8. ZEGERID [Concomitant]
     Dosage: 40 MG, UNK
  9. SIMVASTATIN [Concomitant]
     Dosage: 40 MG, UNK
  10. LEXAPRO [Concomitant]
     Dosage: 10 MG, DAILY
  11. XGEVA [Concomitant]
     Dosage: 120 MG, MONTHLY

REACTIONS (2)
  - Breast disorder [Unknown]
  - Fatigue [Recovered/Resolved]
